FAERS Safety Report 9293631 (Version 1)
Quarter: 2013Q2

REPORT INFORMATION
  Report Type: Spontaneous
  Country: GB (occurrence: GB)
  Receive Date: 20130516
  Receipt Date: 20130516
  Transmission Date: 20140414
  Serious: Yes (Other)
  Sender: FDA-Public Use
  Company Number: GB-MYLANLABS-2013S1009918

PATIENT
  Age: 19 Year
  Sex: Female
  Weight: 50.8 kg

DRUGS (6)
  1. CITALOPRAM [Suspect]
     Indication: GENERALISED ANXIETY DISORDER
     Route: 048
     Dates: start: 20130201, end: 20130401
  2. CITALOPRAM [Suspect]
     Indication: DEPRESSION
     Route: 048
     Dates: start: 20130201, end: 20130401
  3. CITALOPRAM [Suspect]
     Indication: GENERALISED ANXIETY DISORDER
     Route: 048
  4. CITALOPRAM [Suspect]
     Indication: DEPRESSION
     Route: 048
  5. BUSCOPAN [Concomitant]
     Indication: PRODUCT USED FOR UNKNOWN INDICATION
  6. LOESTRIN [Concomitant]
     Indication: PRODUCT USED FOR UNKNOWN INDICATION

REACTIONS (4)
  - Headache [Recovered/Resolved]
  - Menstruation irregular [Recovered/Resolved]
  - Menorrhagia [Recovered/Resolved]
  - Migraine [Recovered/Resolved]
